FAERS Safety Report 17371659 (Version 1)
Quarter: 2020Q1

REPORT INFORMATION
  Report Type: Spontaneous
  Country: US (occurrence: US)
  Receive Date: 20200205
  Receipt Date: 20200205
  Transmission Date: 20200409
  Serious: No
  Sender: FDA-Public Use
  Company Number: US-ARRAY-2020-07243

PATIENT

DRUGS (3)
  1. MEKTOVI [Suspect]
     Active Substance: BINIMETINIB
     Indication: NEUROENDOCRINE TUMOUR
  2. BRAFTOVI [Suspect]
     Active Substance: ENCORAFENIB
     Indication: NEUROENDOCRINE TUMOUR
  3. CETUXIMAB. [Concomitant]
     Active Substance: CETUXIMAB
     Indication: NEUROENDOCRINE TUMOUR

REACTIONS (2)
  - Oedema [Unknown]
  - Product use in unapproved indication [Unknown]
